FAERS Safety Report 8928978 (Version 5)
Quarter: 2014Q1

REPORT INFORMATION
  Report Type: Spontaneous
  Country: US (occurrence: US)
  Receive Date: 20121127
  Receipt Date: 20140221
  Transmission Date: 20141002
  Serious: Yes (Death, Other)
  Sender: FDA-Public Use
  Company Number: US-AMGEN-USASP2012075420

PATIENT
  Age: 65 Year
  Sex: Female
  Weight: 62.59 kg

DRUGS (14)
  1. XGEVA [Suspect]
     Indication: BREAST CANCER RECURRENT
     Dosage: UNK UNK, QMO
     Route: 042
     Dates: start: 20120301, end: 20120901
  2. XGEVA [Suspect]
     Indication: OSTEOPOROSIS
  3. XGEVA [Suspect]
     Indication: PROPHYLAXIS
  4. FOSAMAX [Suspect]
     Indication: OSTEOPOROSIS
     Dosage: 70 MG, UNK
     Route: 048
     Dates: start: 201101, end: 20120101
  5. ANTINEOPLASTIC AGENTS [Concomitant]
     Indication: BREAST CANCER RECURRENT
     Dosage: UNK
     Route: 042
  6. LEVOXYL [Concomitant]
     Indication: HYPOTHYROIDISM
     Route: 048
  7. FOLIC ACID [Concomitant]
  8. SIMVASTATIN [Concomitant]
     Indication: HYPERLIPIDAEMIA
     Route: 048
  9. BAYER ASPIRIN [Concomitant]
  10. CENTRUM SILVER                     /02363801/ [Concomitant]
  11. L-ARGININE                         /00126101/ [Concomitant]
  12. CALCIUM [Concomitant]
  13. VESICARE [Concomitant]
  14. PRILOSEC                           /00661201/ [Concomitant]

REACTIONS (4)
  - Death [Fatal]
  - Breast cancer recurrent [Unknown]
  - Osteonecrosis of jaw [Not Recovered/Not Resolved]
  - Pain [Recovered/Resolved]
